FAERS Safety Report 14966191 (Version 2)
Quarter: 2018Q2

REPORT INFORMATION
  Report Type: Spontaneous
  Country: JP (occurrence: JP)
  Receive Date: 20180603
  Receipt Date: 20180629
  Transmission Date: 20180711
  Serious: Yes (Other)
  Sender: FDA-Public Use
  Company Number: JP-TAKEDA-2018TJP014590

PATIENT
  Age: 81 Year
  Sex: Male

DRUGS (1)
  1. NESINA [Suspect]
     Active Substance: ALOGLIPTIN BENZOATE
     Indication: BLOOD GLUCOSE ABNORMAL
     Dosage: 25 MG, UNK
     Route: 048

REACTIONS (1)
  - Interstitial lung disease [Unknown]
